FAERS Safety Report 23444999 (Version 2)
Quarter: 2024Q1

REPORT INFORMATION
  Report Type: Spontaneous
  Country: JP (occurrence: JP)
  Receive Date: 20240125
  Receipt Date: 20240226
  Transmission Date: 20240410
  Serious: Yes (Other)
  Sender: FDA-Public Use
  Company Number: JP-002147023-NVSJ2023JP017823

PATIENT
  Age: 94 Year
  Sex: Female

DRUGS (1)
  1. ENTRESTO [Suspect]
     Active Substance: SACUBITRIL\VALSARTAN
     Indication: Hypertension
     Dosage: 100 MG
     Route: 048
     Dates: end: 20231215

REACTIONS (2)
  - Blood pressure systolic decreased [Recovered/Resolved]
  - Therapeutic response increased [Recovered/Resolved]

NARRATIVE: CASE EVENT DATE: 20231215
